FAERS Safety Report 5562464-X (Version None)
Quarter: 2007Q4

REPORT INFORMATION
  Report Type: 
  Country: None (occurrence: None)
  Receive Date: 20071215
  Receipt Date: 20070702
  Transmission Date: 20080405
  Serious: No
  Sender: FDA-Public Use
  Company Number: US-AMGEN-US232134

PATIENT
  Age: 76 Year
  Sex: Female

DRUGS (20)
  1. ARANESP [Suspect]
     Indication: MYELODYSPLASTIC SYNDROME
     Route: 065
     Dates: start: 20061201, end: 20070529
  2. SYNTHROID [Concomitant]
     Route: 065
  3. PLAVIX [Concomitant]
     Route: 065
  4. DILTIAZEM [Concomitant]
     Route: 065
  5. ACTONEL [Concomitant]
     Route: 065
  6. ACETAMINOPHEN [Concomitant]
     Route: 065
  7. VITAMIN D [Concomitant]
     Route: 065
  8. EVISTA [Concomitant]
     Route: 065
  9. CITRACAL [Concomitant]
     Route: 065
  10. CENTRUM SILVER [Concomitant]
     Route: 065
  11. ASPIRIN [Concomitant]
     Route: 065
  12. DIOVAN [Concomitant]
     Route: 065
  13. ATENOLOL [Concomitant]
     Route: 065
  14. CHROMAGEN FORTE [Concomitant]
     Route: 065
  15. ASCORBIC ACID [Concomitant]
     Route: 065
  16. CARBIDOPA AND LEVODOPA [Concomitant]
     Route: 065
  17. KETOPROFEN [Concomitant]
     Route: 065
  18. NASAL PREPARATIONS [Concomitant]
     Route: 045
  19. PATANOL [Concomitant]
     Route: 047
  20. HYDROCORTISONE ACETATE [Concomitant]
     Route: 065

REACTIONS (1)
  - MENTAL IMPAIRMENT [None]
